FAERS Safety Report 20329097 (Version 1)
Quarter: 2022Q1

REPORT INFORMATION
  Report Type: Spontaneous
  Country: US (occurrence: US)
  Receive Date: 20220112
  Receipt Date: 20220112
  Transmission Date: 20220424
  Serious: No
  Sender: FDA-Public Use
  Company Number: US-INTRA-CELLULAR THERAPIES, INC.-2021ICT00613

PATIENT
  Age: 3 Decade
  Sex: Female

DRUGS (1)
  1. CAPLYTA [Suspect]
     Active Substance: LUMATEPERONE
     Dosage: REACREATIONALLY

REACTIONS (8)
  - Hyperhidrosis [Unknown]
  - Migraine [Unknown]
  - Acne [Unknown]
  - Erythema [Unknown]
  - Alopecia [Unknown]
  - Arthralgia [Unknown]
  - Back pain [Unknown]
  - Intentional product misuse [Not Recovered/Not Resolved]
